FAERS Safety Report 7382968-7 (Version None)
Quarter: 2011Q1

REPORT INFORMATION
  Report Type: 
  Country: None (occurrence: None)
  Receive Date: 20110330
  Receipt Date: 20110316
  Transmission Date: 20110831
  Serious: Yes (Life-Threatening)
  Sender: FDA-Public Use
  Company Number: GB-RANBAXY-2011R1-43045

PATIENT
  Age: 52 Year
  Sex: Male

DRUGS (6)
  1. FINASTERIDE [Concomitant]
     Indication: PRODUCT USED FOR UNKNOWN INDICATION
     Dosage: 5 MG, QD
     Route: 048
     Dates: start: 20101101
  2. SALBUTAMOL [Concomitant]
     Indication: PRODUCT USED FOR UNKNOWN INDICATION
     Dosage: 100 UG, PRN
     Route: 055
     Dates: start: 20050101
  3. SIMVASTATIN [Suspect]
     Indication: DYSLIPIDAEMIA
     Dosage: 20 MG, UNK
     Route: 048
     Dates: start: 20110224, end: 20110224
  4. NAPROXEN [Concomitant]
     Indication: PRODUCT USED FOR UNKNOWN INDICATION
     Dosage: 250 MG, BID
     Route: 048
     Dates: start: 20101201
  5. PARACETAMOL [Concomitant]
     Indication: PRODUCT USED FOR UNKNOWN INDICATION
     Dosage: 1 G, PRN
     Route: 048
     Dates: start: 20100101
  6. QVAR 40 [Concomitant]
     Indication: PRODUCT USED FOR UNKNOWN INDICATION
     Dosage: 2 DF, BID
     Route: 055
     Dates: start: 20090101

REACTIONS (1)
  - THROAT TIGHTNESS [None]
